FAERS Safety Report 4902806-9 (Version None)
Quarter: 2006Q1

REPORT INFORMATION
  Report Type: 
  Country: None (occurrence: None)
  Receive Date: 20060113
  Receipt Date: 20050203
  Transmission Date: 20060701
  Serious: Yes (Other)
  Sender: FDA-Public Use
  Company Number: HQWYE670203MAY04

PATIENT
  Age: 46 Year
  Sex: Female
  Weight: 68.1 kg

DRUGS (8)
  1. PREMPRO [Suspect]
     Indication: HORMONE REPLACEMENT THERAPY
     Dosage: 0.625MG/2.5MG, ORAL
     Route: 048
     Dates: start: 20000610
  2. ESTRATAB [Suspect]
     Indication: HORMONE REPLACEMENT THERAPY
     Dosage: 0.625MG, ORAL
     Route: 048
     Dates: start: 19990617
  3. EVISTA [Suspect]
     Indication: HORMONE REPLACEMENT THERAPY
     Dosage: 60 MG 1X EPR 1 DAY, ORAL ; 60MG DAILY, ORAL
     Route: 048
     Dates: start: 20020504, end: 20021228
  4. EVISTA [Suspect]
     Indication: HORMONE REPLACEMENT THERAPY
     Dosage: 60 MG 1X EPR 1 DAY, ORAL ; 60MG DAILY, ORAL
     Route: 048
     Dates: start: 20020504, end: 20021228
  5. PREFEST [Suspect]
     Dosage: ORAL
     Route: 048
     Dates: start: 20000404, end: 20000428
  6. PREMARIN [Suspect]
     Dosage: 2.5 MG 1X PER 1 DAY, ORAL
     Route: 048
     Dates: start: 20000223
  7. PAXIL [Concomitant]
  8. LODINE [Concomitant]

REACTIONS (2)
  - DEEP VEIN THROMBOSIS [None]
  - MYOCARDIAL INFARCTION [None]
